FAERS Safety Report 8425418-1 (Version None)
Quarter: 2012Q2

REPORT INFORMATION
  Report Type: 
  Country: None (occurrence: None)
  Receive Date: 20120604
  Receipt Date: 20120523
  Transmission Date: 20120825
  Serious: Yes (Death, Life-Threatening, Hospitalization, Congenital Anomaly, Other)
  Sender: FDA-Public Use
  Company Number: AUR-APL-2012-02407

PATIENT
  Sex: Male
  Weight: 2.87 kg

DRUGS (4)
  1. METHYLDOPA [Concomitant]
  2. FOLSAURE (FOLIC ACID) [Concomitant]
  3. METFFORMIN HYDROCHLORIDE [Suspect]
     Indication: INSULIN RESISTANCE
     Dosage: 1500;1000 MG, 1500 MG, DAILY UNTIL GESTATION WEEK 18, TRANSPLACENTAL
     Route: 064
     Dates: start: 20091015
  4. METFFORMIN HYDROCHLORIDE [Suspect]
     Indication: INSULIN RESISTANCE
     Dosage: 1500;1000 MG, 1500 MG, DAILY UNTIL GESTATION WEEK 18, TRANSPLACENTAL
     Route: 064
     Dates: end: 20100629

REACTIONS (13)
  - THROMBOCYTOPENIA NEONATAL [None]
  - HYPOSPADIAS [None]
  - FOETAL DISORDER [None]
  - MACROCEPHALY [None]
  - CAESAREAN SECTION [None]
  - RESPIRATORY DISORDER NEONATAL [None]
  - CONGENITAL BRAIN DAMAGE [None]
  - HYPOXIC-ISCHAEMIC ENCEPHALOPATHY [None]
  - OLIGOHYDRAMNIOS [None]
  - INTRAVENTRICULAR HAEMORRHAGE [None]
  - MATERNAL DRUGS AFFECTING FOETUS [None]
  - FEEDING DISORDER NEONATAL [None]
  - CEREBRAL HAEMORRHAGE NEONATAL [None]
